FAERS Safety Report 13681322 (Version 1)
Quarter: 2017Q2

REPORT INFORMATION
  Report Type: Spontaneous
  Country: US (occurrence: US)
  Receive Date: 20170623
  Receipt Date: 20170623
  Transmission Date: 20170830
  Serious: No
  Sender: FDA-Public Use
  Company Number: US-PFIZER INC-2017272987

PATIENT
  Age: 73 Year
  Sex: Female

DRUGS (1)
  1. SUTENT [Suspect]
     Active Substance: SUNITINIB MALATE
     Dosage: 50 MG, CYCLIC, (2 TABS EVERY DAY X 14 DAYS, 7 DAYS OFF)
     Dates: start: 20161228

REACTIONS (2)
  - Tongue discomfort [Unknown]
  - Oral pain [Unknown]
